FAERS Safety Report 12351430 (Version 1)
Quarter: 2016Q2

REPORT INFORMATION
  Report Type: Spontaneous
  Country: FR (occurrence: FR)
  Receive Date: 20160510
  Receipt Date: 20160510
  Transmission Date: 20160815
  Serious: Yes (Other)
  Sender: FDA-Public Use
  Company Number: FR-009507513-1604FRA012778

PATIENT
  Age: 74 Year
  Sex: Male
  Weight: 98 kg

DRUGS (6)
  1. MUPHORAN [Concomitant]
     Active Substance: FOTEMUSTINE
     Dosage: 100 MG/M2, (200 MG IV) DAY 8
     Route: 042
     Dates: start: 20160317
  2. MUPHORAN [Concomitant]
     Active Substance: FOTEMUSTINE
     Dosage: 100 MG/M2, (200 MG IV) DAY ONE AND TWO
     Route: 042
     Dates: start: 20150309
  3. JOSIR [Concomitant]
     Active Substance: TAMSULOSIN
     Route: 048
  4. KEYTRUDA [Suspect]
     Active Substance: PEMBROLIZUMAB
     Indication: MALIGNANT MELANOMA STAGE IV
     Dosage: 2 MG/KG, UNK
     Route: 042
     Dates: start: 20160411
  5. VESICARE [Concomitant]
     Active Substance: SOLIFENACIN SUCCINATE
     Route: 048
  6. MUPHORAN [Concomitant]
     Active Substance: FOTEMUSTINE
     Indication: NEOPLASM MALIGNANT
     Dosage: 100 MG/M2, (200 MG IV) DAY 15
     Route: 042
     Dates: start: 20160411

REACTIONS (2)
  - Hepatocellular injury [Recovering/Resolving]
  - Jaundice cholestatic [Recovering/Resolving]

NARRATIVE: CASE EVENT DATE: 20160413
